FAERS Safety Report 9904286 (Version 1)
Quarter: 2014Q1

REPORT INFORMATION
  Report Type: Spontaneous
  Country: FR (occurrence: FR)
  Receive Date: 20140218
  Receipt Date: 20140218
  Transmission Date: 20141002
  Serious: Yes (Hospitalization)
  Sender: FDA-Public Use
  Company Number: FR-ASTRAZENECA-2014SE10079

PATIENT
  Age: 24124 Day
  Sex: Male

DRUGS (6)
  1. INEXIUM [Suspect]
     Route: 048
     Dates: start: 20131125, end: 20140106
  2. BACTRIM FORTE [Suspect]
     Route: 048
     Dates: start: 20131125, end: 20140106
  3. ZELITREX [Suspect]
     Route: 048
     Dates: start: 20131125, end: 20140106
  4. ORACILLINE [Suspect]
     Route: 048
     Dates: start: 20131125, end: 20140106
  5. VELCADE [Suspect]
     Route: 058
     Dates: start: 20131125, end: 20131223
  6. LASILIX [Suspect]
     Route: 048
     Dates: start: 201310

REACTIONS (2)
  - Toxic skin eruption [Recovered/Resolved]
  - Hyperpyrexia [Recovered/Resolved]
